FAERS Safety Report 13727751 (Version 1)
Quarter: 2017Q3

REPORT INFORMATION
  Report Type: Spontaneous
  Country: TR (occurrence: TR)
  Receive Date: 20170707
  Receipt Date: 20170707
  Transmission Date: 20171127
  Serious: Yes (Other)
  Sender: FDA-Public Use
  Company Number: TR-SUN PHARMACEUTICAL INDUSTRIES LTD-2016R1-116613

PATIENT
  Age: 33 Year
  Sex: Male

DRUGS (1)
  1. SULFASALAZINE. [Suspect]
     Active Substance: SULFASALAZINE
     Indication: BACK PAIN
     Route: 065

REACTIONS (5)
  - Alopecia areata [Recovered/Resolved]
  - Vitiligo [Recovered/Resolved]
  - Drug reaction with eosinophilia and systemic symptoms [Recovered/Resolved]
  - Ankylosing spondylitis [Recovered/Resolved]
  - Seronegative arthritis [Recovered/Resolved]
